FAERS Safety Report 13444759 (Version 3)
Quarter: 2017Q4

REPORT INFORMATION
  Report Type: Spontaneous
  Country: JP (occurrence: JP)
  Receive Date: 20170414
  Receipt Date: 20171016
  Transmission Date: 20180320
  Serious: Yes (Life-Threatening, Hospitalization, Other)
  Sender: FDA-Public Use
  Company Number: JP-BRISTOL-MYERS SQUIBB COMPANY-BMS-2017-031441

PATIENT
  Age: 81 Year
  Sex: Male
  Weight: 44.9 kg

DRUGS (2)
  1. BAYASPIRIN [Suspect]
     Active Substance: ASPIRIN
     Indication: ATRIAL FIBRILLATION
     Dosage: 100 MG, QD
     Route: 048
     Dates: start: 20170207, end: 20170401
  2. ELIQUIS [Suspect]
     Active Substance: APIXABAN
     Indication: CEREBROVASCULAR ACCIDENT PROPHYLAXIS
     Dosage: 2.5 MG, BID
     Route: 048
     Dates: start: 20170209, end: 20170401

REACTIONS (10)
  - Extradural haematoma [Recovering/Resolving]
  - Transfusion [Unknown]
  - Craniotomy [Unknown]
  - Atelectasis [Unknown]
  - Brain oedema [Unknown]
  - Cardiomegaly [Unknown]
  - Vascular cauterisation [Unknown]
  - Pulmonary congestion [Unknown]
  - Subdural haematoma [Recovering/Resolving]
  - Subdural haematoma evacuation [Unknown]

NARRATIVE: CASE EVENT DATE: 20170331
